FAERS Safety Report 16273205 (Version 1)
Quarter: 2019Q2

REPORT INFORMATION
  Report Type: Other
  Country: CN (occurrence: CN)
  Receive Date: 20190506
  Receipt Date: 20190506
  Transmission Date: 20190711
  Serious: Yes (Life-Threatening)
  Sender: FDA-Public Use
  Company Number: CN-JIANGSU HENGRUI MEDICINE CO., LTD.-2066641

PATIENT
  Age: 46 Year
  Sex: Female
  Weight: 46 kg

DRUGS (5)
  1. CISATRACURIUM BESYLATE INJECTION USP, 10 MG/5 ML (2 MG/ML) AND 200 MG/ [Suspect]
     Active Substance: CISATRACURIUM BESYLATE
     Indication: INDUCTION OF ANAESTHESIA
     Route: 041
     Dates: start: 20190418, end: 20190418
  2. PROPOFOL. [Concomitant]
     Active Substance: PROPOFOL
     Route: 041
     Dates: start: 20190418, end: 20190418
  3. ETOMIDATE INJECTABLE EMULSION [Concomitant]
     Route: 041
     Dates: start: 20190418, end: 20190418
  4. SODIUM POTASSIUM MAGNESIUM CALCIUM AND GLUCOSE INJECTION [Concomitant]
     Route: 041
     Dates: start: 20190418, end: 20190418
  5. SUFENTANIL CITRATE. [Concomitant]
     Active Substance: SUFENTANIL CITRATE
     Route: 041
     Dates: start: 20190418, end: 20190418

REACTIONS (5)
  - Peau d^orange [Unknown]
  - Hypotension [Recovering/Resolving]
  - Shock [Recovering/Resolving]
  - Generalised erythema [Unknown]
  - Erythema [Unknown]

NARRATIVE: CASE EVENT DATE: 20190418
